FAERS Safety Report 15699349 (Version 1)
Quarter: 2018Q4

REPORT INFORMATION
  Report Type: Spontaneous
  Country: US (occurrence: US)
  Receive Date: 20181207
  Receipt Date: 20181207
  Transmission Date: 20190205
  Serious: Yes (Life-Threatening, Hospitalization)
  Sender: FDA-Public Use
  Company Number: None

PATIENT
  Age: 83 Year
  Sex: Female
  Weight: 77 kg

DRUGS (1)
  1. ALTEPLASE. [Suspect]
     Active Substance: ALTEPLASE
     Indication: ISCHAEMIC STROKE
     Dosage: ?          OTHER FREQUENCY:6.9MG, 62.4 MG;?
     Route: 042

REACTIONS (2)
  - Packed red blood cell transfusion [None]
  - Rectal haemorrhage [None]

NARRATIVE: CASE EVENT DATE: 20181119
